FAERS Safety Report 6073962-7 (Version None)
Quarter: 2009Q1

REPORT INFORMATION
  Report Type: 
  Country: None (occurrence: None)
  Receive Date: 20090211
  Receipt Date: 20090203
  Transmission Date: 20090719
  Serious: Yes (Hospitalization)
  Sender: FDA-Public Use
  Company Number: PHHY2009GB04097

PATIENT
  Age: 72 Year
  Sex: Female

DRUGS (14)
  1. ACLASTA [Suspect]
     Dosage: UNK
     Route: 042
     Dates: start: 20090119
  2. AMITRIPTYLINE HYDROCHLORIDE [Concomitant]
  3. AMLODIPINE BESILATE [Concomitant]
  4. ASPIRIN [Concomitant]
  5. ATORVASTATIN [Concomitant]
  6. DIAZEPAM [Concomitant]
  7. ECONAZOLE NITRATE [Concomitant]
  8. FENTANYL-75 [Concomitant]
  9. GABAPENTIN [Concomitant]
  10. LEVOTHYROXINE SODIUM [Concomitant]
  11. NICORANDIL [Concomitant]
  12. PARACETAMOL [Concomitant]
  13. PILOCARPINE [Concomitant]
  14. QUININE SULPHATE [Concomitant]

REACTIONS (9)
  - ABDOMINAL PAIN [None]
  - APHASIA [None]
  - ATELECTASIS [None]
  - C-REACTIVE PROTEIN INCREASED [None]
  - CHEST X-RAY ABNORMAL [None]
  - CONFUSIONAL STATE [None]
  - LOWER RESPIRATORY TRACT INFECTION [None]
  - PYREXIA [None]
  - VOMITING [None]
